FAERS Safety Report 24662553 (Version 2)
Quarter: 2024Q4

REPORT INFORMATION
  Report Type: Spontaneous
  Country: NL (occurrence: NL)
  Receive Date: 20241126
  Receipt Date: 20241203
  Transmission Date: 20250115
  Serious: Yes (Hospitalization)
  Sender: TAKEDA
  Company Number: NL-FERRINGPH-2024FE06418

PATIENT
  Age: 22 Year
  Sex: Female

DRUGS (4)
  1. PENTASA [Suspect]
     Active Substance: MESALAMINE
     Indication: Product used for unknown indication
     Dosage: UNK
  2. PENTASA [Suspect]
     Active Substance: MESALAMINE
     Dosage: 2 GRAM, QD
     Dates: start: 20241108
  3. PENTASA [Suspect]
     Active Substance: MESALAMINE
     Dosage: 4 GRAM, QD
     Dates: start: 202306
  4. ETHINYL ESTRADIOL\LEVONORGESTREL [Concomitant]
     Active Substance: ETHINYL ESTRADIOL\LEVONORGESTREL
     Dosage: UNK

REACTIONS (1)
  - Nephrolithiasis [Unknown]

NARRATIVE: CASE EVENT DATE: 20231231
